FAERS Safety Report 7884148-5 (Version None)
Quarter: 2011Q4

REPORT INFORMATION
  Report Type: 
  Country: None (occurrence: None)
  Receive Date: 20111102
  Receipt Date: 20111026
  Transmission Date: 20120403
  Serious: Yes (Hospitalization)
  Sender: FDA-Public Use
  Company Number: US-GLAXOSMITHKLINE-A0951394A

PATIENT
  Age: 60 Year
  Sex: Female
  Weight: 50.9 kg

DRUGS (16)
  1. PROCHLORPERAZINE [Concomitant]
     Route: 048
  2. PAZOPANIB [Suspect]
     Indication: GASTROINTESTINAL STROMAL TUMOUR
     Dosage: 800MG PER DAY
     Route: 048
     Dates: start: 20110831
  3. TYLENOL-500 [Concomitant]
  4. POTASSIUM [Concomitant]
     Route: 048
  5. LORAZEPAM [Concomitant]
     Route: 048
  6. VALACYCLOVIR [Concomitant]
  7. IBUPROFEN [Concomitant]
  8. SLOW FE [Concomitant]
     Route: 048
  9. OXYCODONE HCL [Concomitant]
  10. DIPHENOXYLATE [Concomitant]
  11. HYDROCHLOROTHIAZIDE [Concomitant]
     Route: 048
  12. FENTANYL [Concomitant]
     Route: 062
  13. NEXIUM [Concomitant]
     Route: 048
  14. LUNESTA [Concomitant]
     Route: 048
  15. CITRUCEL [Concomitant]
  16. ONDANSETRON [Concomitant]
     Route: 048

REACTIONS (1)
  - EMBOLISM [None]
